FAERS Safety Report 8167110-7 (Version None)
Quarter: 2012Q1

REPORT INFORMATION
  Report Type: 
  Country: None (occurrence: None)
  Receive Date: 20120227
  Receipt Date: 20120215
  Transmission Date: 20120608
  Serious: Yes (Hospitalization)
  Sender: FDA-Public Use
  Company Number: US-ACTELION-A-US2012-60068

PATIENT

DRUGS (1)
  1. TRACLEER [Suspect]
     Indication: PULMONARY ARTERIAL HYPERTENSION
     Dosage: UNK
     Route: 048
     Dates: start: 20110826, end: 20120119

REACTIONS (10)
  - ANAEMIA [None]
  - PACKED RED BLOOD CELL TRANSFUSION [None]
  - IRON DEFICIENCY [None]
  - HAEMATOCRIT DECREASED [None]
  - PULMONARY OEDEMA [None]
  - RENAL FAILURE [None]
  - HAEMOGLOBIN DECREASED [None]
  - DYSPNOEA [None]
  - UTERINE HAEMORRHAGE [None]
  - FLUID OVERLOAD [None]
